FAERS Safety Report 9848382 (Version 1)
Quarter: 2014Q1

REPORT INFORMATION
  Report Type: Spontaneous
  Country: US (occurrence: None)
  Receive Date: 20140127
  Receipt Date: 20140127
  Transmission Date: 20141002
  Serious: Yes (Disabling)
  Sender: FDA-Public Use
  Company Number: None

PATIENT
  Sex: 0

DRUGS (1)
  1. METHYLPHENIDATE ER [Suspect]
     Indication: ATTENTION DEFICIT/HYPERACTIVITY DISORDER
     Dosage: 2 PILLS ONCE DAILY TAKEN BY MOUTH
     Route: 048
     Dates: start: 20140213

REACTIONS (3)
  - Nausea [None]
  - Product substitution issue [None]
  - Drug effect decreased [None]
